FAERS Safety Report 24451096 (Version 1)
Quarter: 2024Q4

REPORT INFORMATION
  Report Type: Spontaneous
  Country: CH (occurrence: CH)
  Receive Date: 20241017
  Receipt Date: 20241017
  Transmission Date: 20250114
  Serious: Yes (Hospitalization)
  Sender: TEVA
  Company Number: CH-TEVA-VS-3250374

PATIENT
  Age: 64 Year
  Sex: Female

DRUGS (15)
  1. METHOTREXATE [Suspect]
     Active Substance: METHOTREXATE
     Indication: Chronic myeloid leukaemia
     Dosage: SEVENTH CYCLE OF THERAPY
     Route: 037
     Dates: start: 20240723
  2. METHOTREXATE [Suspect]
     Active Substance: METHOTREXATE
     Indication: Chronic myeloid leukaemia
     Route: 037
     Dates: start: 20231025, end: 20240723
  3. BACTRIM [Concomitant]
     Active Substance: SULFAMETHOXAZOLE\TRIMETHOPRIM
     Indication: Product used for unknown indication
  4. VALACYCLOVIR [Concomitant]
     Active Substance: VALACYCLOVIR HYDROCHLORIDE
     Indication: Product used for unknown indication
     Dosage: SANDOZ
  5. AMLODIPINE MESYLATE [Concomitant]
     Active Substance: AMLODIPINE MESYLATE
     Indication: Product used for unknown indication
  6. CO CANDESARTAN SPIRIG [Concomitant]
     Indication: Product used for unknown indication
  7. FOLIC ACID [Concomitant]
     Active Substance: FOLIC ACID
     Indication: Product used for unknown indication
  8. BLINCYTO [Suspect]
     Active Substance: BLINATUMOMAB
     Indication: Chronic myeloid leukaemia
     Route: 040
     Dates: start: 20231107, end: 20240430
  9. BLINCYTO [Suspect]
     Active Substance: BLINATUMOMAB
     Indication: Chronic myeloid leukaemia
     Dosage: D1-D28 FIFTH CYCLE OF THERAPY
     Route: 040
     Dates: start: 20240430
  10. CYTARABINE [Suspect]
     Active Substance: CYTARABINE
     Indication: Chronic myeloid leukaemia
     Route: 037
     Dates: start: 20231025, end: 20240723
  11. CYTARABINE [Suspect]
     Active Substance: CYTARABINE
     Indication: Chronic myeloid leukaemia
     Dosage: SEVENTH CYCLE OF THERAPY
     Route: 037
     Dates: start: 20240723
  12. SOLU-CORTEF [Suspect]
     Active Substance: HYDROCORTISONE SODIUM SUCCINATE
     Indication: Chronic myeloid leukaemia
     Route: 037
     Dates: start: 20231025, end: 20240723
  13. SOLU-CORTEF [Suspect]
     Active Substance: HYDROCORTISONE SODIUM SUCCINATE
     Indication: Chronic myeloid leukaemia
     Dosage: SEVENTH CYCLE OF THERAPY
     Route: 037
     Dates: start: 20240723
  14. ICLUSIG [Suspect]
     Active Substance: PONATINIB HYDROCHLORIDE
     Indication: Chronic myeloid leukaemia
     Route: 048
     Dates: start: 20231107, end: 20240430
  15. ICLUSIG [Suspect]
     Active Substance: PONATINIB HYDROCHLORIDE
     Indication: Chronic myeloid leukaemia
     Dosage: FIFTH CYCLEOF THERAPY
     Route: 048
     Dates: start: 20240430

REACTIONS (1)
  - Acute psychosis [Recovering/Resolving]

NARRATIVE: CASE EVENT DATE: 20240701
